FAERS Safety Report 11501477 (Version 2)
Quarter: 2015Q3

REPORT INFORMATION
  Report Type: Report from Study
  Country: ES (occurrence: ES)
  Receive Date: 20150914
  Receipt Date: 20150917
  Transmission Date: 20151125
  Serious: Yes (Other)
  Sender: FDA-Public Use
  Company Number: ES-GLAXOSMITHKLINE-ES2015GSK130049

PATIENT
  Age: 79 Year
  Sex: Female
  Weight: 56.3 kg

DRUGS (5)
  1. TRAMETINIB [Suspect]
     Active Substance: TRAMETINIB
     Dosage: UNK
     Dates: start: 20140605, end: 20140714
  2. DABRAFENIB [Suspect]
     Active Substance: DABRAFENIB
     Indication: METASTATIC MALIGNANT MELANOMA
     Dosage: 150 MG, BID
     Dates: start: 20130403, end: 20131113
  3. TRAMETINIB [Suspect]
     Active Substance: TRAMETINIB
     Indication: METASTATIC MALIGNANT MELANOMA
     Dosage: 2 MG, QD
     Dates: start: 20140501, end: 20140522
  4. DABRAFENIB [Suspect]
     Active Substance: DABRAFENIB
     Dosage: 100 MG, BID
     Dates: start: 20131113, end: 20140522
  5. DABRAFENIB [Suspect]
     Active Substance: DABRAFENIB
     Dosage: 100 UNK, UNK
     Dates: start: 20140605

REACTIONS (2)
  - Macular oedema [Recovered/Resolved]
  - Uveitis [Recovered/Resolved]

NARRATIVE: CASE EVENT DATE: 20150729
